FAERS Safety Report 20809649 (Version 1)
Quarter: 2022Q2

REPORT INFORMATION
  Report Type: Other
  Country: RU (occurrence: None)
  Receive Date: 20220510
  Receipt Date: 20220510
  Transmission Date: 20220721
  Serious: Yes (Hospitalization)
  Sender: FDA-Public Use
  Company Number: RU-ROCHE-3089390

PATIENT
  Age: 4 Year
  Sex: Female

DRUGS (1)
  1. ZELBORAF [Suspect]
     Active Substance: VEMURAFENIB
     Indication: Metastatic malignant melanoma
     Route: 065

REACTIONS (7)
  - Generalised oedema [Recovered/Resolved]
  - Erythema [Recovered/Resolved]
  - Mucosal disorder [Recovered/Resolved]
  - Mucocutaneous rash [Recovered/Resolved]
  - Skin burning sensation [Recovered/Resolved]
  - Burning sensation mucosal [Recovered/Resolved]
  - Asthenia [Recovered/Resolved]

NARRATIVE: CASE EVENT DATE: 20210501
